FAERS Safety Report 9259864 (Version 2)
Quarter: 2013Q4

REPORT INFORMATION
  Report Type: Spontaneous
  Country: US (occurrence: US)
  Receive Date: 20130429
  Receipt Date: 20131004
  Transmission Date: 20140711
  Serious: Yes (Hospitalization, Disabling)
  Sender: FDA-Public Use
  Company Number: US-ASTRAZENECA-2013SE27540

PATIENT
  Age: 45 Year
  Sex: Female

DRUGS (12)
  1. NEXIUM [Suspect]
     Indication: GASTROOESOPHAGEAL REFLUX DISEASE
     Route: 048
  2. NEXIUM [Suspect]
     Indication: GASTROOESOPHAGEAL REFLUX DISEASE
     Route: 048
  3. NEXIUM [Suspect]
     Indication: GASTROOESOPHAGEAL REFLUX DISEASE
     Route: 048
     Dates: start: 20120412
  4. NEXIUM [Suspect]
     Indication: GASTROOESOPHAGEAL REFLUX DISEASE
     Route: 048
     Dates: start: 20120412
  5. ATENOLOL [Concomitant]
     Route: 048
  6. BENICAR [Concomitant]
     Route: 048
  7. VITAMIN D [Concomitant]
  8. LASIX [Concomitant]
     Route: 048
     Dates: start: 20120725
  9. CYMBALTA [Concomitant]
     Route: 048
  10. SINGULAIR [Concomitant]
     Route: 048
  11. ZOCOR [Concomitant]
     Route: 048
  12. PRILOSEC [Concomitant]
     Route: 048

REACTIONS (17)
  - Anxiety [Unknown]
  - Back disorder [Unknown]
  - Chest discomfort [Unknown]
  - Fibromyalgia [Unknown]
  - Hypertension [Unknown]
  - Ligament sprain [Unknown]
  - Nasal congestion [Unknown]
  - Scoliosis [Unknown]
  - Vitamin D deficiency [Unknown]
  - Osteoporosis [Unknown]
  - Arthritis [Unknown]
  - Bone disorder [Unknown]
  - Lower limb fracture [Unknown]
  - Fibula fracture [Unknown]
  - Tibia fracture [Unknown]
  - Wrist fracture [Unknown]
  - Carpal tunnel syndrome [Unknown]
